FAERS Safety Report 8383378-6 (Version None)
Quarter: 2012Q1

REPORT INFORMATION
  Report Type: 
  Country: None (occurrence: None)
  Receive Date: 20120323
  Receipt Date: 20110803
  Transmission Date: 20120608
  Serious: Yes (Death, Other)
  Sender: FDA-Public Use
  Company Number: 163-21880-11051151

PATIENT
  Age: 65 Year
  Sex: Female

DRUGS (4)
  1. REVLIMID [Suspect]
     Indication: MULTIPLE MYELOMA
     Dosage: 25 MG, 1 IN 1 D, PO 15 MG, 1 IN 1 D, PO 10 MG, DAILY X 21 Q4WKS, PO
     Route: 048
     Dates: start: 20090101
  2. REVLIMID [Suspect]
     Indication: MULTIPLE MYELOMA
     Dosage: 25 MG, 1 IN 1 D, PO 15 MG, 1 IN 1 D, PO 10 MG, DAILY X 21 Q4WKS, PO
     Route: 048
     Dates: start: 20100701, end: 20110301
  3. REVLIMID [Suspect]
     Indication: MULTIPLE MYELOMA
     Dosage: 25 MG, 1 IN 1 D, PO 15 MG, 1 IN 1 D, PO 10 MG, DAILY X 21 Q4WKS, PO
     Route: 048
     Dates: start: 20090401
  4. BACTRIM (BATRIM) [Concomitant]

REACTIONS (2)
  - PNEUMONIA [None]
  - PANCYTOPENIA [None]
